FAERS Safety Report 7624721-2 (Version None)
Quarter: 2011Q3

REPORT INFORMATION
  Report Type: 
  Country: None (occurrence: None)
  Receive Date: 20110720
  Receipt Date: 20110713
  Transmission Date: 20111222
  Serious: Yes (Other)
  Sender: FDA-Public Use
  Company Number: US-BAYER-2011-061702

PATIENT
  Sex: Female

DRUGS (2)
  1. MIRENA [Suspect]
     Indication: CONTRACEPTION
     Dosage: UNK
     Dates: start: 20070201
  2. MIRENA [Suspect]
     Indication: MENORRHAGIA

REACTIONS (3)
  - ABDOMINAL PAIN [None]
  - PAIN [None]
  - VAGINAL HAEMORRHAGE [None]
